FAERS Safety Report 7550918-6 (Version None)
Quarter: 2011Q2

REPORT INFORMATION
  Report Type: 
  Country: None (occurrence: None)
  Receive Date: 20110616
  Receipt Date: 20110614
  Transmission Date: 20111010
  Serious: Yes (Other)
  Sender: FDA-Public Use
  Company Number: US-AMGEN-USASP2011026071

PATIENT
  Age: 75 Year
  Sex: Male
  Weight: 77.415 kg

DRUGS (14)
  1. IVIGLOB-EX [Concomitant]
     Dosage: 10 MG, UNK
  2. MULTIVITAMIN                       /00097801/ [Concomitant]
  3. DECADRON [Concomitant]
  4. LIPITOR [Concomitant]
     Dosage: 20 MG, UNK
  5. SINGULAIR [Concomitant]
     Dosage: 10 MG, UNK
  6. JEVITY [Concomitant]
  7. OMEPRAZOLE [Concomitant]
     Dosage: 20 MG, QD
  8. SYNTHROID [Concomitant]
     Dosage: 50 A?G, UNK
  9. NPLATE [Suspect]
     Indication: IDIOPATHIC THROMBOCYTOPENIC PURPURA
     Dosage: 87 A?G/KG, UNK
     Dates: start: 20100104
  10. KEPPRA [Concomitant]
     Dosage: 500 MG, BID
  11. NASONEX [Concomitant]
  12. CALCIUM 600 + D [Concomitant]
  13. TYLENOL P.M. [Concomitant]
  14. INFLUENZA VACCIN [Concomitant]
     Dosage: UNK
     Dates: start: 20100929

REACTIONS (7)
  - SUBDURAL HAEMATOMA [None]
  - CORONARY ARTERY BYPASS [None]
  - CONVULSION [None]
  - PYREXIA [None]
  - PLATELET DESTRUCTION INCREASED [None]
  - OESOPHAGEAL DILATATION [None]
  - BRAIN INJURY [None]
